FAERS Safety Report 12619033 (Version 2)
Quarter: 2016Q3

REPORT INFORMATION
  Report Type: Report from Study
  Country: US (occurrence: US)
  Receive Date: 20160803
  Receipt Date: 20160823
  Transmission Date: 20161109
  Serious: Yes (Other)
  Sender: FDA-Public Use
  Company Number: US-BAXALTA-2016BLT005519

PATIENT
  Age: 56 Year
  Sex: Female

DRUGS (3)
  1. GAMMAGARD LIQUID [Suspect]
     Active Substance: HUMAN IMMUNOGLOBULIN G
     Dosage: UNK
     Route: 042
  2. GAMMAGARD LIQUID [Suspect]
     Active Substance: HUMAN IMMUNOGLOBULIN G
     Dosage: 35 G, 1X A MONTH
     Route: 042
     Dates: start: 20160715
  3. GAMMAGARD LIQUID [Suspect]
     Active Substance: HUMAN IMMUNOGLOBULIN G
     Indication: PRIMARY IMMUNODEFICIENCY SYNDROME
     Route: 058

REACTIONS (11)
  - Infusion site warmth [Unknown]
  - Vision blurred [Recovered/Resolved]
  - Infusion site swelling [Unknown]
  - Infusion site extravasation [Recovered/Resolved]
  - Pyrexia [Recovered/Resolved]
  - Infusion site erythema [Unknown]
  - Meningitis aseptic [Unknown]
  - Chest injury [Unknown]
  - Infusion site pain [Unknown]
  - Eye symptom [Recovered/Resolved]
  - Oropharyngeal pain [Recovered/Resolved]

NARRATIVE: CASE EVENT DATE: 201607
